FAERS Safety Report 4964139-4 (Version None)
Quarter: 2006Q1

REPORT INFORMATION
  Report Type: 
  Country: None (occurrence: None)
  Receive Date: 20060330
  Receipt Date: 20060321
  Transmission Date: 20060701
  Serious: Yes (Hospitalization)
  Sender: FDA-Public Use
  Company Number: 163-20785-06030737

PATIENT
  Age: 46 Year
  Sex: Male

DRUGS (2)
  1. THALOMID [Suspect]
     Indication: MULTIPLE MYELOMA
     Dosage: 50-200MG, DAILY, ORAL
     Route: 048
     Dates: start: 20051206, end: 20051222
  2. DEXAMETHASONE [Concomitant]

REACTIONS (2)
  - BRAIN NEOPLASM [None]
  - CONVULSION [None]
